FAERS Safety Report 22633402 (Version 1)
Quarter: 2023Q2

REPORT INFORMATION
  Report Type: Other
  Country: CN (occurrence: None)
  Receive Date: 20230623
  Receipt Date: 20230623
  Transmission Date: 20230721
  Serious: No
  Sender: FDA-Public Use
  Company Number: CN-ROCHE-3372532

PATIENT
  Age: 31 Year
  Sex: Female

DRUGS (12)
  1. OSELTAMIVIR [Suspect]
     Active Substance: OSELTAMIVIR
     Indication: Influenza
     Dosage: D1-D5
     Route: 065
  2. OSELTAMIVIR [Suspect]
     Active Substance: OSELTAMIVIR
     Indication: Herpes zoster
  3. ALBUMIN HUMAN [Suspect]
     Active Substance: ALBUMIN HUMAN
     Indication: Hypoalbuminaemia
     Dosage: 5-10 G
     Route: 042
  4. TRETINOIN [Suspect]
     Active Substance: TRETINOIN
     Indication: Acute promyelocytic leukaemia
     Dosage: ON DAY1-28 (COURSE 1-5), DAY 16-30 (COURSE 7, 9 AND 11-13)
     Route: 065
  5. ARSENIC TRIOXIDE [Suspect]
     Active Substance: ARSENIC TRIOXIDE
     Indication: Acute promyelocytic leukaemia
     Dosage: ON DAY 1 (COURSE 1-5)
     Route: 065
  6. ARSENIC TRIOXIDE [Suspect]
     Active Substance: ARSENIC TRIOXIDE
     Dosage: ON DAY 2-DAY 28 (COURSE 1-5) THEN 10 MG/M2 DAY 1-D15 (COURSE 7-18)
     Route: 065
  7. CYTARABINE [Suspect]
     Active Substance: CYTARABINE
     Indication: Acute promyelocytic leukaemia
     Dosage: DAY 1-5 (COURSE 6)
     Route: 065
  8. CYTARABINE [Suspect]
     Active Substance: CYTARABINE
     Dosage: (COURSE 7)
     Route: 037
  9. PIRARUBICIN [Suspect]
     Active Substance: PIRARUBICIN
     Indication: Acute promyelocytic leukaemia
     Dosage: DAY1-3  (COURSE 6)
     Route: 065
  10. METHOTREXATE [Suspect]
     Active Substance: METHOTREXATE
     Indication: Acute promyelocytic leukaemia
     Dosage: (COURSE 7)
     Route: 037
  11. DEXAMETHASONE [Suspect]
     Active Substance: DEXAMETHASONE
     Indication: Acute promyelocytic leukaemia
     Dosage: (COURSE 7)
     Route: 037
  12. UNSPECIFIED INGREDIENT [Suspect]
     Active Substance: UNSPECIFIED INGREDIENT
     Indication: Venous thrombosis
     Dosage: 200 U/KG
     Route: 065

REACTIONS (5)
  - Premature delivery [Unknown]
  - Oedema [Unknown]
  - Blood pressure increased [Unknown]
  - Proteinuria [Unknown]
  - Maternal exposure during pregnancy [Unknown]
